FAERS Safety Report 25680020 (Version 1)
Quarter: 2025Q3

REPORT INFORMATION
  Report Type: Spontaneous
  Country: US (occurrence: US)
  Receive Date: 20250814
  Receipt Date: 20250814
  Transmission Date: 20251020
  Serious: No
  Sender: ALEXION PHARMACEUTICALS
  Company Number: US-AstraZeneca-CH-00930438AP

PATIENT
  Sex: Female

DRUGS (1)
  1. BUDESONIDE\FORMOTEROL [Suspect]
     Active Substance: BUDESONIDE\FORMOTEROL
     Indication: Asthma
     Route: 065

REACTIONS (5)
  - Wrong technique in product usage process [Unknown]
  - Wrong technique in product usage process [Unknown]
  - Nasal congestion [Unknown]
  - Product dose omission issue [Unknown]
  - Incorrect dose administered by device [Unknown]
